FAERS Safety Report 19939462 (Version 4)
Quarter: 2022Q1

REPORT INFORMATION
  Report Type: Spontaneous
  Country: US (occurrence: US)
  Receive Date: 20211011
  Receipt Date: 20220302
  Transmission Date: 20220424
  Serious: Yes (Other)
  Sender: FDA-Public Use
  Company Number: US-PFIZER INC-2021729397

PATIENT
  Age: 35 Year
  Sex: Male

DRUGS (2)
  1. XELJANZ XR [Suspect]
     Active Substance: TOFACITINIB CITRATE
     Indication: Colitis ulcerative
     Dosage: 11 MG, 1X/DAY
     Route: 048
  2. XELJANZ XR [Suspect]
     Active Substance: TOFACITINIB CITRATE
     Dosage: 22 MG, 1X/DAY
     Dates: start: 20210713

REACTIONS (11)
  - Rectal haemorrhage [Unknown]
  - Haematochezia [Unknown]
  - Transfusion [Unknown]
  - Product prescribing error [Unknown]
  - Therapeutic product effect incomplete [Unknown]
  - Blood iron decreased [Unknown]
  - Palpitations [Unknown]
  - Anxiety [Unknown]
  - Feeling cold [Unknown]
  - Spider vein [Unknown]
  - Cardiovascular disorder [Unknown]

NARRATIVE: CASE EVENT DATE: 20210101
